FAERS Safety Report 23852755 (Version 2)
Quarter: 2024Q2

REPORT INFORMATION
  Report Type: Other
  Country: EG (occurrence: EG)
  Receive Date: 20240514
  Receipt Date: 20240516
  Transmission Date: 20240715
  Serious: Yes (Hospitalization, Other)
  Sender: FDA-Public Use
  Company Number: EG-ASTELLAS-2024US013366

PATIENT
  Age: 57 Year
  Sex: Female

DRUGS (4)
  1. MIRABEGRON [Suspect]
     Active Substance: MIRABEGRON
     Indication: Urinary incontinence
     Route: 065
     Dates: start: 20240118, end: 20240121
  2. VILDAGLUSE PLUS [Concomitant]
     Indication: Diabetes mellitus
     Dosage: UNK UNK, ONCE DAILY
     Route: 065
     Dates: start: 20231201
  3. BLOKATENS [Concomitant]
     Indication: Product used for unknown indication
     Dosage: (160/12.5) UNK, ONCE DAILY
     Route: 065
  4. ATENOLOL [Concomitant]
     Active Substance: ATENOLOL
     Indication: Hypertension
     Dosage: UNK UNK, UNKNOWN FREQ.
     Route: 065
     Dates: start: 202201, end: 20240122

REACTIONS (6)
  - Renal injury [Unknown]
  - Blood pressure increased [Unknown]
  - Epistaxis [Recovered/Resolved]
  - Inappropriate schedule of product administration [Unknown]
  - Overdose [Unknown]
  - Off label use [Unknown]

NARRATIVE: CASE EVENT DATE: 20240118
